FAERS Safety Report 7755142-X (Version None)
Quarter: 2011Q3

REPORT INFORMATION
  Report Type: 
  Country: None (occurrence: None)
  Receive Date: 20110916
  Receipt Date: 20110912
  Transmission Date: 20111222
  Serious: No
  Sender: FDA-Public Use
  Company Number: US-PFIZER INC-2011215217

PATIENT
  Sex: Female

DRUGS (1)
  1. LEVONORGESTREL + ETHINYL ESTRADIOL [Suspect]

REACTIONS (3)
  - IRRITABILITY [None]
  - FEELING ABNORMAL [None]
  - THINKING ABNORMAL [None]
